FAERS Safety Report 10900278 (Version 1)
Quarter: 2015Q1

REPORT INFORMATION
  Report Type: Spontaneous
  Country: US (occurrence: US)
  Receive Date: 20150310
  Receipt Date: 20150310
  Transmission Date: 20150721
  Serious: No
  Sender: FDA-Public Use
  Company Number: US-ASTRAZENECA-2014SE67363

PATIENT
  Age: 22998 Day
  Sex: Female
  Weight: 87.1 kg

DRUGS (2)
  1. BYETTA [Suspect]
     Active Substance: EXENATIDE
     Dosage: UNK
     Route: 065
  2. METFORMIN HCL [Concomitant]
     Active Substance: METFORMIN HYDROCHLORIDE

REACTIONS (1)
  - Blood glucose increased [Unknown]

NARRATIVE: CASE EVENT DATE: 20140814
